FAERS Safety Report 4562279-5 (Version None)
Quarter: 2005Q1

REPORT INFORMATION
  Report Type: 
  Country: None (occurrence: None)
  Receive Date: 20050121
  Receipt Date: 20050103
  Transmission Date: 20050727
  Serious: Yes (Hospitalization, Other)
  Sender: FDA-Public Use
  Company Number: 2005BI000112

PATIENT
  Age: 49 Year
  Sex: Male
  Weight: 80.7403 kg

DRUGS (15)
  1. AVONEX [Suspect]
     Indication: MULTIPLE SCLEROSIS
     Dosage: IM
     Route: 030
     Dates: start: 19960101, end: 19990101
  2. DILANTIN [Concomitant]
  3. BACLOFEN [Concomitant]
  4. PROVIGIL [Concomitant]
  5. TRAZODONE [Concomitant]
  6. DIGITEK [Concomitant]
  7. NEURONTIN [Concomitant]
  8. ALLEGRA [Concomitant]
  9. FLUOXETINE [Concomitant]
  10. SPIRONOLACTONE [Concomitant]
  11. DOC-Q-LACE [Concomitant]
  12. KLOR-CON [Concomitant]
  13. FUROSEMIDE [Concomitant]
  14. LESCOL XL [Concomitant]
  15. TEGRETOL [Concomitant]

REACTIONS (5)
  - ASTHENIA [None]
  - CONDITION AGGRAVATED [None]
  - EPILEPSY [None]
  - FALL [None]
  - QUADRIPLEGIA [None]
